FAERS Safety Report 7717199-1 (Version None)
Quarter: 2011Q3

REPORT INFORMATION
  Report Type: 
  Country: None (occurrence: None)
  Receive Date: 20110826
  Receipt Date: 20110826
  Transmission Date: 20111222
  Serious: Yes (Hospitalization)
  Sender: FDA-Public Use
  Company Number: None

PATIENT
  Sex: Female
  Weight: 41 kg

DRUGS (5)
  1. RITUXIMAB (MOAB C2B8 ANTI CD20, CHIMERIC) [Suspect]
     Dosage: 550 MG
  2. VINCRISTINE SULFATE [Suspect]
     Dosage: 2 MG
  3. PREDNISONE [Suspect]
     Dosage: 300 MG
  4. DOXORUBICIN HYDROCHLORIDE [Suspect]
     Dosage: 70 MG
  5. CYCLOPHOSPHAMIDE [Suspect]
     Dosage: 1100 MG

REACTIONS (4)
  - NIGHT SWEATS [None]
  - PYREXIA [None]
  - PNEUMONIA [None]
  - HERPES ZOSTER [None]
